FAERS Safety Report 23531636 (Version 2)
Quarter: 2024Q1

REPORT INFORMATION
  Report Type: Report from Study
  Country: US (occurrence: US)
  Receive Date: 20240216
  Receipt Date: 20240319
  Transmission Date: 20240410
  Serious: Yes (Hospitalization, Other)
  Sender: FDA-Public Use
  Company Number: US-GILEAD-2024-0662384

PATIENT
  Sex: Male

DRUGS (3)
  1. AMBRISENTAN [Suspect]
     Active Substance: AMBRISENTAN
     Indication: Product used for unknown indication
     Dosage: 5 MG, QD
     Route: 065
     Dates: start: 20201022
  2. ELIQUIS [Concomitant]
     Active Substance: APIXABAN
  3. SILDENAFIL CITRATE [Concomitant]
     Active Substance: SILDENAFIL CITRATE

REACTIONS (15)
  - Cardiac valve disease [Unknown]
  - Malaise [Unknown]
  - Sepsis [Unknown]
  - Hallucination [Unknown]
  - Asthenia [Unknown]
  - Dizziness [Unknown]
  - Constipation [Unknown]
  - Urine analysis abnormal [Unknown]
  - Feeding disorder [Unknown]
  - Body temperature abnormal [Unknown]
  - Gastrointestinal disorder [Unknown]
  - Gait inability [Unknown]
  - Tremor [Unknown]
  - Illness [Unknown]
  - Product dose omission issue [Unknown]
